FAERS Safety Report 16211265 (Version 1)
Quarter: 2019Q2

REPORT INFORMATION
  Report Type: Spontaneous
  Country: US (occurrence: US)
  Receive Date: 20190417
  Receipt Date: 20190417
  Transmission Date: 20190711
  Serious: No
  Sender: FDA-Public Use
  Company Number: None

PATIENT
  Age: 43 Year
  Sex: Female
  Weight: 112.5 kg

DRUGS (5)
  1. TRANSDERM SCOP [Suspect]
     Active Substance: SCOPOLAMINE
     Indication: MOTION SICKNESS
     Dates: start: 20190330, end: 20190412
  2. PEPCID AC [Concomitant]
     Active Substance: FAMOTIDINE
  3. MAXALT [Concomitant]
     Active Substance: RIZATRIPTAN BENZOATE
  4. PRISTIQ EXTENDED-RELEASE [Concomitant]
     Active Substance: DESVENLAFAXINE SUCCINATE
  5. FLINTSTONES MULTIVITAMIN [Concomitant]

REACTIONS (5)
  - Application site irritation [None]
  - Application site pruritus [None]
  - Application site erythema [None]
  - Skin exfoliation [None]
  - Application site scab [None]

NARRATIVE: CASE EVENT DATE: 20190405
